FAERS Safety Report 6770941-9 (Version None)
Quarter: 2010Q2

REPORT INFORMATION
  Report Type: 
  Country: None (occurrence: None)
  Receive Date: 20100616
  Receipt Date: 20100609
  Transmission Date: 20101027
  Serious: Yes (Hospitalization)
  Sender: FDA-Public Use
  Company Number: US-BIOGENIDEC-2010BI019116

PATIENT
  Age: 65 Year
  Sex: Female
  Weight: 60 kg

DRUGS (2)
  1. AVONEX [Suspect]
     Indication: MULTIPLE SCLEROSIS
     Route: 030
     Dates: start: 19990101
  2. AVONEX [Suspect]
     Route: 030

REACTIONS (6)
  - BACK PAIN [None]
  - DYSSTASIA [None]
  - MULTIPLE SCLEROSIS RELAPSE [None]
  - NUCLEAR MAGNETIC RESONANCE IMAGING ABNORMAL [None]
  - VITAMIN B12 DEFICIENCY [None]
  - VITAMIN D DEFICIENCY [None]
